FAERS Safety Report 10993088 (Version 1)
Quarter: 2015Q2

REPORT INFORMATION
  Report Type: Spontaneous
  Country: CA (occurrence: CA)
  Receive Date: 20150407
  Receipt Date: 20150407
  Transmission Date: 20150821
  Serious: Yes (Congenital Anomaly, Other)
  Sender: FDA-Public Use
  Company Number: CA-CIPLA LTD.-2015CA02720

PATIENT

DRUGS (1)
  1. SERTRALINE [Suspect]
     Active Substance: SERTRALINE HYDROCHLORIDE
     Indication: DEPRESSION
     Dosage: UNK
     Route: 064

REACTIONS (5)
  - Congenital eye disorder [Unknown]
  - Dysmorphism [Unknown]
  - Congenital anomaly [Unknown]
  - Ear malformation [Unknown]
  - Foetal exposure during pregnancy [None]
